FAERS Safety Report 22123740 (Version 1)
Quarter: 2023Q1

REPORT INFORMATION
  Report Type: Report from Study
  Country: CO (occurrence: CO)
  Receive Date: 20230322
  Receipt Date: 20230322
  Transmission Date: 20230417
  Serious: Yes (Other)
  Sender: FDA-Public Use
  Company Number: CO-ABBVIE-4699354

PATIENT
  Sex: Female
  Weight: 60 kg

DRUGS (1)
  1. SKYRIZI [Suspect]
     Active Substance: RISANKIZUMAB-RZAA
     Indication: Psoriasis
     Dosage: FORM STRENGTH: 75
     Route: 058
     Dates: start: 20220513

REACTIONS (3)
  - Osteoarthritis [Recovering/Resolving]
  - Gait disturbance [Recovering/Resolving]
  - Hypokinesia [Recovering/Resolving]

NARRATIVE: CASE EVENT DATE: 20220101
